FAERS Safety Report 9026096 (Version 1)
Quarter: 2013Q1

REPORT INFORMATION
  Report Type: Spontaneous
  Country: FR (occurrence: None)
  Receive Date: 20130107
  Receipt Date: 20130107
  Transmission Date: 20140127
  Serious: Yes (Hospitalization)
  Sender: FDA-Public Use
  Company Number: DSA_61715_2013

PATIENT
  Age: 76 Year
  Sex: Female

DRUGS (16)
  1. FLAGYL /00012501/ [Suspect]
     Dosage: (DF)
     Dates: start: 20121025, end: 20121106
  2. RIFAMPICIN [Suspect]
     Route: 042
     Dates: start: 20121022, end: 20121029
  3. AMOXICILLIN (AMOXICILLIN) [Suspect]
     Dosage: DF
     Dates: start: 20121025, end: 20121105
  4. APROVEL [Concomitant]
  5. ATENOLOL [Concomitant]
  6. VERAPAMIL [Concomitant]
  7. AERIUS /01398501/ [Concomitant]
  8. AMAREL [Concomitant]
  9. XELEVIA [Concomitant]
  10. LEVOTHYROX [Concomitant]
  11. COUMADINE [Concomitant]
  12. VANCOMYCIN [Concomitant]
  13. GENTAMYCIN /00047101/ [Concomitant]
  14. BRISTOPEN [Concomitant]
  15. AUGMENTIN /00852801/ [Concomitant]
  16. STAGID [Concomitant]

REACTIONS (3)
  - Pyrexia [None]
  - Drug intolerance [None]
  - Abdominal pain [None]
